FAERS Safety Report 6028174-X (Version None)
Quarter: 2009Q1

REPORT INFORMATION
  Report Type: 
  Country: None (occurrence: None)
  Receive Date: 20090106
  Receipt Date: 20081230
  Transmission Date: 20090719
  Serious: Yes (Other)
  Sender: FDA-Public Use
  Company Number: US-ASTRAZENECA-2008UW28948

PATIENT
  Age: 64 Year
  Sex: Female

DRUGS (1)
  1. ATACAND HCT [Suspect]
     Route: 048

REACTIONS (3)
  - BALANCE DISORDER [None]
  - FALL [None]
  - WRIST FRACTURE [None]
